FAERS Safety Report 4810583-5 (Version None)
Quarter: 2005Q4

REPORT INFORMATION
  Report Type: 
  Country: None (occurrence: None)
  Receive Date: 20051025
  Receipt Date: 20051025
  Transmission Date: 20060501
  Serious: Yes (Hospitalization)
  Sender: FDA-Public Use
  Company Number: None

PATIENT
  Age: 65 Year
  Sex: Female
  Weight: 141 kg

DRUGS (7)
  1. WARFARIN 5MG BRISTOL MYERS SQUIBB [Suspect]
     Indication: ATRIAL FIBRILLATION
     Dosage: 2.5MG/5MG MWF/RO W PO
     Route: 048
     Dates: start: 20031212, end: 20050620
  2. ASPIRIN [Suspect]
     Indication: CORONARY ARTERY DISEASE
     Dosage: 81MG DAILY PO
     Route: 048
  3. LOVASTATIN [Concomitant]
  4. BUPROPION HCL [Concomitant]
  5. VENLAFAXINE HCL [Concomitant]
  6. ATENOLOL [Concomitant]
  7. SPIRONOLACTONE [Concomitant]

REACTIONS (3)
  - DUODENAL ULCER HAEMORRHAGE [None]
  - MELAENA [None]
  - ULCER [None]
